FAERS Safety Report 6576751-X (Version None)
Quarter: 2010Q1

REPORT INFORMATION
  Report Type: 
  Country: None (occurrence: None)
  Receive Date: 20100210
  Receipt Date: 20100128
  Transmission Date: 20100710
  Serious: Yes (Disabling, Other)
  Sender: FDA-Public Use
  Company Number: US-ELI_LILLY_AND_COMPANY-US200805000059

PATIENT
  Sex: Female

DRUGS (12)
  1. PROZAC [Suspect]
     Indication: MAJOR DEPRESSION
     Dosage: 20 MG, DAILY (1/D)
     Route: 065
     Dates: start: 19880601
  2. PROZAC [Suspect]
     Dosage: 60 MG, DAILY (1/D)
     Route: 065
  3. PROZAC [Suspect]
     Dosage: 80 MG, DAILY (1/D)
     Route: 065
     Dates: start: 20010101, end: 20070101
  4. PROZAC [Suspect]
     Dosage: 60 MG, UNK
     Dates: start: 20090101
  5. CYMBALTA [Suspect]
     Dosage: UNK, UNK
     Dates: start: 20070101, end: 20070101
  6. NEURONTIN [Concomitant]
     Dosage: UNK, UNKNOWN
     Route: 065
  7. TOPAMAX [Concomitant]
     Dosage: UNK, UNKNOWN
     Route: 065
  8. DEPAKOTE [Concomitant]
     Dosage: UNK, UNKNOWN
     Route: 065
  9. ADDERALL 30 [Concomitant]
  10. EFFEXOR [Concomitant]
  11. RITALIN [Concomitant]
  12. ZOLOFT [Concomitant]

REACTIONS (18)
  - ATTENTION DEFICIT/HYPERACTIVITY DISORDER [None]
  - BIPOLAR DISORDER [None]
  - DOPAMINE DYSREGULATION SYNDROME [None]
  - DRUG INEFFECTIVE [None]
  - EYELID INJURY [None]
  - FEELING ABNORMAL [None]
  - GAIT DISTURBANCE [None]
  - HEAD INJURY [None]
  - HYPERPHAGIA [None]
  - HYPERTHERMIA MALIGNANT [None]
  - INJURY [None]
  - MENTAL DISORDER [None]
  - MOVEMENT DISORDER [None]
  - MUSCLE RIGIDITY [None]
  - OBSESSIVE THOUGHTS [None]
  - OEDEMA PERIPHERAL [None]
  - PAIN [None]
  - WALKING DISABILITY [None]
